FAERS Safety Report 19517485 (Version 1)
Quarter: 2021Q3

REPORT INFORMATION
  Report Type: Spontaneous
  Country: US (occurrence: US)
  Receive Date: 20210712
  Receipt Date: 20210712
  Transmission Date: 20211014
  Serious: No
  Sender: FDA-Public Use
  Company Number: US-CIPLA LTD.-2021US04372

PATIENT

DRUGS (8)
  1. RITONAVIR. [Suspect]
     Active Substance: RITONAVIR
     Indication: ANTIRETROVIRAL THERAPY
     Dosage: UNK, COURSE 1 (100 UNITS NOT SPECIFIED)
     Route: 048
  2. DOLUTEGRAVIR [Suspect]
     Active Substance: DOLUTEGRAVIR
     Indication: ANTIRETROVIRAL THERAPY
     Dosage: 50 (UNITS NOT SPECIFIED), COURSE 1
     Route: 048
     Dates: end: 202004
  3. ZIDOVUDINE. [Suspect]
     Active Substance: ZIDOVUDINE
     Indication: ANTIRETROVIRAL THERAPY
     Dosage: 2 (UNITS NOT SPECIFIED) (COURSE 1)
     Route: 042
     Dates: start: 202004, end: 202004
  4. RITONAVIR. [Suspect]
     Active Substance: RITONAVIR
     Dosage: UNK, COURSE 2 (200 UNITS NOT SPECIFIED)
     Route: 048
  5. ATAZANAVIR. [Suspect]
     Active Substance: ATAZANAVIR
     Indication: ANTIRETROVIRAL THERAPY
     Dosage: 300 (UNIT NOT SPECIFIED), COURSE 1
     Route: 048
  6. EMTRICITABINE/TENOFOVIR [Suspect]
     Active Substance: EMTRICITABINE\TENOFOVIR
     Indication: ANTIRETROVIRAL THERAPY
     Dosage: 1 (UNITS NOT SPECIFIED), COURSE 1
     Route: 048
     Dates: end: 202004
  7. ZIDOVUDINE. [Suspect]
     Active Substance: ZIDOVUDINE
     Dosage: 1 (UNITS NOT SPECIFIED) (COURSE 2)
     Route: 042
     Dates: start: 202004, end: 202004
  8. DARUNAVIR [Suspect]
     Active Substance: DARUNAVIR
     Indication: ANTIRETROVIRAL THERAPY
     Dosage: 1200 (UNITS NOT SPECIFIED), COURSE 1
     Route: 048

REACTIONS (2)
  - No adverse event [Unknown]
  - Exposure during pregnancy [Unknown]
